FAERS Safety Report 8500007-9 (Version None)
Quarter: 2012Q2

REPORT INFORMATION
  Report Type: 
  Country: None (occurrence: None)
  Receive Date: 20120629
  Receipt Date: 20120613
  Transmission Date: 20120825
  Serious: Yes (Other)
  Sender: FDA-Public Use
  Company Number: 06282012-MK-A

PATIENT
  Sex: Male
  Weight: 88.905 kg

DRUGS (10)
  1. HURRICAINE TOPICAL ANESTHETIC GEL - BEUTLICH [Suspect]
     Indication: TOOTH REPAIR
     Dosage: 1 APPLICATION-ORAL
     Route: 048
     Dates: start: 20120611
  2. NORVASC [Concomitant]
  3. IMDUR (ISOSORBIDE) [Concomitant]
  4. MINOCYCLINE HCL [Concomitant]
  5. NIASPAN [Concomitant]
  6. ASPIRIN [Concomitant]
  7. LIPITOR [Concomitant]
  8. ARTICAINE HYDROCHLORIDE WITH EPINEPHRINE [Suspect]
     Dosage: 1 APPLICATION-ORAL
     Route: 048
     Dates: start: 20120611
  9. CELEBREX [Concomitant]
  10. POTASSIUM CITRATE [Concomitant]

REACTIONS (1)
  - DYSGEUSIA [None]
